FAERS Safety Report 7504628-1 (Version None)
Quarter: 2011Q2

REPORT INFORMATION
  Report Type: 
  Country: None (occurrence: None)
  Receive Date: 20110525
  Receipt Date: 20110325
  Transmission Date: 20111010
  Serious: No
  Sender: FDA-Public Use
  Company Number: US-AMGEN-USASP2011014137

PATIENT
  Sex: Female

DRUGS (2)
  1. CORTICOSTEROIDS [Concomitant]
     Dosage: UNK
     Dates: start: 20090801
  2. NPLATE [Suspect]
     Indication: IDIOPATHIC THROMBOCYTOPENIC PURPURA
     Dates: start: 20091116, end: 20091207

REACTIONS (4)
  - MYALGIA [None]
  - ARTHRALGIA [None]
  - BONE PAIN [None]
  - NAUSEA [None]
